FAERS Safety Report 9230592 (Version 3)
Quarter: 2013Q2

REPORT INFORMATION
  Report Type: Spontaneous
  Country: FR (occurrence: None)
  Receive Date: 20130411
  Receipt Date: 20130501
  Transmission Date: 20140414
  Serious: Yes (Other)
  Sender: FDA-Public Use
  Company Number: JPI-P-030486

PATIENT
  Age: 24 Year
  Sex: Female

DRUGS (4)
  1. XYREM [Suspect]
     Indication: HYPERSOMNIA
     Route: 048
     Dates: start: 201302, end: 2013
  2. MODAFINIL (MODAFINIL)? [Concomitant]
  3. VALPROATE SEMISODIUM [Concomitant]
  4. PRAZEPAM [Concomitant]

REACTIONS (7)
  - Nausea [None]
  - Middle insomnia [None]
  - Insomnia [None]
  - Initial insomnia [None]
  - Convulsion [None]
  - Paraesthesia [None]
  - Hypoaesthesia [None]
